FAERS Safety Report 7011016-3 (Version None)
Quarter: 2010Q3

REPORT INFORMATION
  Report Type: 
  Country: None (occurrence: None)
  Receive Date: 20100923
  Receipt Date: 20081125
  Transmission Date: 20110219
  Serious: No
  Sender: FDA-Public Use
  Company Number: US-WYE-H06968008

PATIENT
  Sex: Female
  Weight: 68.1 kg

DRUGS (2)
  1. PREMARIN [Suspect]
     Indication: URETHRAL ATROPHY
     Dosage: A ^PEA^ SIZE DAB APPLIED ONCE WEEKLY
     Route: 067
  2. AMOXICILLIN [Concomitant]

REACTIONS (2)
  - PNEUMONIA KLEBSIELLA [None]
  - UTERINE INFECTION [None]
